FAERS Safety Report 8850105 (Version 1)
Quarter: 2012Q4

REPORT INFORMATION
  Report Type: 
  Country: US (occurrence: US)
  Receive Date: 20121019
  Receipt Date: 20121019
  Transmission Date: 20130627
  Serious: Yes (Disabling, Other)
  Sender: FDA-Public Use
  Company Number: US-009507513-1210USA007076

PATIENT

DRUGS (2)
  1. FOSAMAX [Suspect]
     Indication: OSTEOPOROSIS
     Dosage: UNK
     Route: 048
     Dates: start: 1995, end: 2005
  2. FOSAMAX [Suspect]
     Indication: OSTEOPENIA

REACTIONS (5)
  - Femur fracture [Not Recovered/Not Resolved]
  - Osteoporosis [Not Recovered/Not Resolved]
  - Multiple fractures [Not Recovered/Not Resolved]
  - Low turnover osteopathy [Not Recovered/Not Resolved]
  - Femur fracture [Not Recovered/Not Resolved]
